FAERS Safety Report 8439834-5 (Version None)
Quarter: 2012Q2

REPORT INFORMATION
  Report Type: 
  Country: None (occurrence: None)
  Receive Date: 20120611
  Receipt Date: 20120611
  Transmission Date: 20120825
  Serious: Yes (Other)
  Sender: FDA-Public Use
  Company Number: None

PATIENT
  Age: 45 Year
  Sex: Female
  Weight: 59.8748 kg

DRUGS (2)
  1. SINGULAIR [Suspect]
     Indication: INNER EAR DISORDER
     Dosage: 10 MG, ONCE DAILY, PO
     Route: 048
     Dates: start: 20120501, end: 20120521
  2. SINGULAIR [Suspect]
     Indication: MULTIPLE ALLERGIES
     Dosage: 10 MG, ONCE DAILY, PO
     Route: 048
     Dates: start: 20120501, end: 20120521

REACTIONS (7)
  - AGITATION [None]
  - TREMOR [None]
  - ANXIETY [None]
  - SUICIDAL IDEATION [None]
  - SELF-INJURIOUS IDEATION [None]
  - NERVOUSNESS [None]
  - ANGER [None]
